FAERS Safety Report 12690823 (Version 1)
Quarter: 2016Q3

REPORT INFORMATION
  Report Type: Spontaneous
  Country: US (occurrence: US)
  Receive Date: 20160826
  Receipt Date: 20160826
  Transmission Date: 20161109
  Serious: No
  Sender: FDA-Public Use
  Company Number: US-B.I. PHARMACEUTICALS,INC./RIDGEFIELD-2016-BI-54101BP

PATIENT
  Age: 69 Year
  Sex: Female

DRUGS (3)
  1. MICARDIS [Suspect]
     Active Substance: TELMISARTAN
     Indication: HYPERTENSION
     Dosage: DOSE PER APPLICATION: 40MG/12.5MG; DAILY DOSE:40MG/12.5MG
     Route: 048
     Dates: start: 2014, end: 201512
  2. MICARDIS [Suspect]
     Active Substance: TELMISARTAN
     Dosage: DOSE PER APPLICATION: 40MG/12.5MG DAILY DOSE: 22.86/7.14MG
     Route: 048
     Dates: start: 201512
  3. LEVOTHYROXIN [Concomitant]
     Active Substance: LEVOTHYROXINE
     Indication: HYPOTHYROIDISM
     Dosage: 112 MCG
     Route: 048
     Dates: start: 1986

REACTIONS (3)
  - Dry skin [Not Recovered/Not Resolved]
  - Dehydration [Unknown]
  - Blood uric acid increased [Unknown]

NARRATIVE: CASE EVENT DATE: 201508
